FAERS Safety Report 13468760 (Version 1)
Quarter: 2017Q2

REPORT INFORMATION
  Report Type: Spontaneous
  Country: US (occurrence: US)
  Receive Date: 20170421
  Receipt Date: 20170421
  Transmission Date: 20170830
  Serious: No
  Sender: FDA-Public Use
  Company Number: PHHY2017US057646

PATIENT
  Age: 29 Year
  Sex: Female

DRUGS (2)
  1. IMATINIB [Suspect]
     Active Substance: IMATINIB
     Indication: CHRONIC MYELOID LEUKAEMIA
     Dosage: 400 MG, QD
     Route: 065
  2. IMATINIB [Suspect]
     Active Substance: IMATINIB
     Dosage: 400 MG, QD
     Route: 065

REACTIONS (6)
  - Maternal exposure during pregnancy [Unknown]
  - Normal newborn [Unknown]
  - Conjunctival haemorrhage [Unknown]
  - Paraesthesia [Unknown]
  - Transaminases increased [Unknown]
  - Periorbital oedema [Unknown]
